FAERS Safety Report 13187691 (Version 4)
Quarter: 2017Q4

REPORT INFORMATION
  Report Type: Spontaneous
  Country: US (occurrence: US)
  Receive Date: 20170206
  Receipt Date: 20171103
  Transmission Date: 20180320
  Serious: Yes (Other)
  Sender: FDA-Public Use
  Company Number: US-PFIZER INC-2017048138

PATIENT
  Age: 60 Year
  Sex: Female

DRUGS (3)
  1. IBRANCE [Suspect]
     Active Substance: PALBOCICLIB
     Indication: BREAST CANCER FEMALE
     Dosage: 100 MG, CYCLIC (DAILY FOR 21 DAYS ON AND 7 DAYS OFF)
     Route: 048
     Dates: start: 20170123
  2. IBRANCE [Suspect]
     Active Substance: PALBOCICLIB
     Dosage: 100 MG, CYCLIC (ON FOR 2 WEEKS AND OFF FOR TWO WEEKS)
     Route: 048
     Dates: start: 20170222
  3. IBRANCE [Suspect]
     Active Substance: PALBOCICLIB
     Dosage: 100 MG, CYCLIC (DAILY FOR 21 DAYS ON AND 7 DAYS OFF)
     Route: 048
     Dates: start: 201701

REACTIONS (11)
  - Influenza [Unknown]
  - Insomnia [Unknown]
  - Diarrhoea [Unknown]
  - White blood cell count decreased [Unknown]
  - Drug dose omission [Unknown]
  - Abdominal discomfort [Unknown]
  - Arthralgia [Unknown]
  - Nausea [Unknown]
  - Pyrexia [Unknown]
  - Neutropenia [Unknown]
  - Dry skin [Unknown]

NARRATIVE: CASE EVENT DATE: 2017
